FAERS Safety Report 5311018-9 (Version None)
Quarter: 2007Q2

REPORT INFORMATION
  Report Type: 
  Country: None (occurrence: None)
  Receive Date: 20070430
  Receipt Date: 20070418
  Transmission Date: 20071010
  Serious: Yes (Hospitalization)
  Sender: FDA-Public Use
  Company Number: JP-JNJFOC-20070405866

PATIENT
  Sex: Male

DRUGS (8)
  1. LEVOFLOXACIN [Suspect]
     Indication: RESPIRATORY TRACT INFECTION
     Route: 042
  2. BROACT [Suspect]
     Indication: COUGH
     Route: 042
  3. BROACT [Suspect]
     Indication: PYREXIA
     Route: 042
  4. OMEGACIN [Suspect]
     Indication: INFLAMMATION
     Route: 042
  5. PRODIF [Suspect]
     Indication: INFLAMMATION
     Route: 042
  6. VOLTAREN [Concomitant]
     Indication: PYREXIA
     Route: 048
  7. HUSCODE [Concomitant]
     Route: 042
  8. SOLDEM [Concomitant]
     Route: 042

REACTIONS (1)
  - INFLAMMATION [None]
